FAERS Safety Report 7442188-4 (Version None)
Quarter: 2011Q2

REPORT INFORMATION
  Report Type: 
  Country: None (occurrence: None)
  Receive Date: 20110428
  Receipt Date: 20110420
  Transmission Date: 20111010
  Serious: Yes (Hospitalization, Other)
  Sender: FDA-Public Use
  Company Number: NO-BAXTER-2011BH012054

PATIENT
  Age: 29 Year
  Sex: Female

DRUGS (1)
  1. FLUCONAZOLE [Suspect]
     Indication: PRODUCT USED FOR UNKNOWN INDICATION
     Route: 065
     Dates: start: 20110201, end: 20110301

REACTIONS (4)
  - NAUSEA [None]
  - HEPATIC INFECTION [None]
  - JAUNDICE [None]
  - MALAISE [None]
